FAERS Safety Report 15881907 (Version 1)
Quarter: 2019Q1

REPORT INFORMATION
  Report Type: Spontaneous
  Country: US (occurrence: US)
  Receive Date: 20190128
  Receipt Date: 20190128
  Transmission Date: 20190417
  Serious: No
  Sender: FDA-Public Use
  Company Number: US-BRACCO-2018US06539

PATIENT
  Age: 28 Year
  Sex: Female

DRUGS (1)
  1. READI-CAT 2 [Suspect]
     Active Substance: BARIUM SULFATE
     Indication: NUCLEAR MAGNETIC RESONANCE IMAGING
     Dosage: 2/3 BOTTLE
     Route: 048
     Dates: start: 20181214, end: 20181214

REACTIONS (3)
  - Exposure during pregnancy [Unknown]
  - Product contamination physical [Unknown]
  - Off label use [Unknown]

NARRATIVE: CASE EVENT DATE: 20181214
